FAERS Safety Report 20649703 (Version 1)
Quarter: 2022Q1

REPORT INFORMATION
  Report Type: Spontaneous
  Country: US (occurrence: US)
  Receive Date: 20220329
  Receipt Date: 20220329
  Transmission Date: 20220423
  Serious: No
  Sender: FDA-Public Use
  Company Number: US-SEBELA IRELAND LIMITED-2021SEB00036

PATIENT
  Age: 72 Year
  Sex: Female

DRUGS (6)
  1. NAFTIFINE [Suspect]
     Active Substance: NAFTIFINE
     Indication: Fungal skin infection
     Dosage: UNK
  2. NAFTIN [Suspect]
     Active Substance: NAFTIFINE HYDROCHLORIDE
     Indication: Fungal skin infection
     Dosage: 1 APPLICATION, 2X/DAY
     Route: 061
     Dates: start: 2018, end: 202012
  3. NAFTIN [Suspect]
     Active Substance: NAFTIFINE HYDROCHLORIDE
     Indication: Onychomycosis
  4. NAFTIN [Suspect]
     Active Substance: NAFTIFINE HYDROCHLORIDE
     Indication: Fungal skin infection
     Dosage: 1 APPLICATION, 2X/DAY
     Route: 061
     Dates: start: 202012
  5. NAFTIN [Suspect]
     Active Substance: NAFTIFINE HYDROCHLORIDE
     Indication: Onychomycosis
     Dosage: ^USED MORE OFTEN AND MORE CONSTANTLY^
     Route: 061
     Dates: end: 202103
  6. UNSPECIFIED INGREDIENT [Concomitant]
     Active Substance: UNSPECIFIED INGREDIENT

REACTIONS (4)
  - Therapeutic product effect delayed [Recovered/Resolved]
  - Therapeutic product effect incomplete [Recovered/Resolved]
  - Therapeutic response shortened [Recovered/Resolved]
  - Pruritus [Not Recovered/Not Resolved]

NARRATIVE: CASE EVENT DATE: 20201201
